FAERS Safety Report 23195547 (Version 3)
Quarter: 2023Q4

REPORT INFORMATION
  Report Type: Report from Study
  Country: GB (occurrence: GB)
  Receive Date: 20231117
  Receipt Date: 20231211
  Transmission Date: 20240109
  Serious: Yes (Other)
  Sender: FDA-Public Use
  Company Number: GB-ALXN-A202306997

PATIENT
  Age: 60 Year
  Sex: Female

DRUGS (3)
  1. SOLIRIS [Suspect]
     Active Substance: ECULIZUMAB
     Indication: Paroxysmal nocturnal haemoglobinuria
     Dosage: 600 MILLIGRAM, QW
     Route: 042
     Dates: start: 20131210, end: 20131231
  2. SOLIRIS [Suspect]
     Active Substance: ECULIZUMAB
     Dosage: 900 MILLIGRAM, Q2W
     Route: 065
     Dates: start: 20140107, end: 20201006
  3. SOLIRIS [Suspect]
     Active Substance: ECULIZUMAB
     Dosage: 1200 MILLIGRAM, Q2W
     Route: 042
     Dates: start: 20201020

REACTIONS (7)
  - Haemorrhage [Unknown]
  - Contusion [Not Recovered/Not Resolved]
  - Off label use [Unknown]
  - Dizziness [Unknown]
  - Nasopharyngitis [Recovered/Resolved]
  - Paraesthesia [Unknown]
  - Fatigue [Not Recovered/Not Resolved]

NARRATIVE: CASE EVENT DATE: 20230501
